FAERS Safety Report 5175628-4 (Version None)
Quarter: 2006Q4

REPORT INFORMATION
  Report Type: 
  Country: None (occurrence: None)
  Receive Date: 20061215
  Receipt Date: 20060719
  Transmission Date: 20070319
  Serious: No
  Sender: FDA-Public Use
  Company Number: US-AMGEN-KDL186855

PATIENT
  Sex: Male

DRUGS (3)
  1. ENBREL [Suspect]
     Indication: PSORIASIS
     Route: 058
     Dates: start: 20041001
  2. ENBREL [Suspect]
     Indication: PSORIATIC ARTHROPATHY
  3. PAXIL [Concomitant]

REACTIONS (1)
  - DERMATITIS ACNEIFORM [None]
